APPROVED DRUG PRODUCT: MINOXIDIL
Active Ingredient: MINOXIDIL
Strength: 2.5MG
Dosage Form/Route: TABLET;ORAL
Application: A071826 | Product #001 | TE Code: AB
Applicant: PH HEALTH LTD
Approved: Nov 14, 1988 | RLD: No | RS: No | Type: RX